FAERS Safety Report 4711468-5 (Version None)
Quarter: 2005Q3

REPORT INFORMATION
  Report Type: 
  Country: None (occurrence: None)
  Receive Date: 20050711
  Receipt Date: 20050627
  Transmission Date: 20060218
  Serious: Yes (Other)
  Sender: FDA-Public Use
  Company Number: 2005-129927-NL

PATIENT
  Age: 26 Year
  Sex: Female
  Weight: 81.6 kg

DRUGS (2)
  1. NUVARING [Suspect]
     Indication: CONTRACEPTION
     Dosage: NI VAGINAL
     Route: 067
     Dates: start: 20050501
  2. ALLEREX [Concomitant]

REACTIONS (11)
  - ABDOMINAL PAIN LOWER [None]
  - ANXIETY [None]
  - CRYING [None]
  - DIZZINESS [None]
  - HEADACHE [None]
  - NAUSEA [None]
  - PAIN IN EXTREMITY [None]
  - PANIC ATTACK [None]
  - PARAESTHESIA [None]
  - RASH [None]
  - VISION BLURRED [None]
